FAERS Safety Report 8313424-7 (Version None)
Quarter: 2012Q2

REPORT INFORMATION
  Report Type: 
  Country: None (occurrence: None)
  Receive Date: 20120426
  Receipt Date: 20120424
  Transmission Date: 20120825
  Serious: Yes (Death, Hospitalization)
  Sender: FDA-Public Use
  Company Number: PHEH2012US004828

PATIENT
  Sex: Male
  Weight: 78.005 kg

DRUGS (1)
  1. EXJADE [Suspect]
     Indication: MYELODYSPLASTIC SYNDROME
     Dosage: 1000 MG, QD
     Route: 048
     Dates: start: 20100101

REACTIONS (3)
  - NEOPLASM MALIGNANT [None]
  - LIVER DISORDER [None]
  - NEOPLASM PROGRESSION [None]
